FAERS Safety Report 19281378 (Version 1)
Quarter: 2021Q2

REPORT INFORMATION
  Report Type: Spontaneous
  Country: US (occurrence: US)
  Receive Date: 20210520
  Receipt Date: 20210520
  Transmission Date: 20210717
  Serious: Yes (Other)
  Sender: FDA-Public Use
  Company Number: US-GLAXOSMITHKLINE-US2021104528

PATIENT
  Sex: Female

DRUGS (2)
  1. PREDNISONE EYE DROPS [Concomitant]
     Active Substance: PREDNISONE
     Indication: OCULAR HYPERAEMIA
     Dosage: UNK
  2. TRELEGY ELLIPTA [Suspect]
     Active Substance: FLUTICASONE FUROATE\UMECLIDINIUM BROMIDE\VILANTEROL TRIFENATATE
     Indication: PRODUCT USED FOR UNKNOWN INDICATION
     Dosage: UNK, EVERY OTHER DAY
     Route: 055

REACTIONS (5)
  - Irritability [Not Recovered/Not Resolved]
  - Scleritis [Unknown]
  - Ocular hyperaemia [Not Recovered/Not Resolved]
  - Inappropriate schedule of product administration [Not Recovered/Not Resolved]
  - Restless legs syndrome [Not Recovered/Not Resolved]
